FAERS Safety Report 5942668-4 (Version None)
Quarter: 2008Q4

REPORT INFORMATION
  Report Type: 
  Country: None (occurrence: None)
  Receive Date: 20081103
  Receipt Date: 20081020
  Transmission Date: 20090506
  Serious: Yes (Hospitalization)
  Sender: FDA-Public Use
  Company Number: 430008K08USA

PATIENT
  Age: 29 Year
  Sex: Female

DRUGS (3)
  1. NOVANTRONE [Suspect]
     Indication: MULTIPLE SCLEROSIS
     Dosage: 4 NOT REPORTED, NOT REPORTED, INTRAVENOUS (NOT OTHERWISE SPECIFIED)
     Dates: start: 20061018, end: 20070401
  2. REBIF [Suspect]
     Indication: MULTIPLE SCLEROSIS
     Dosage: 44 MCG, 3 IN 1 WEEKS, SUBCUTANEOUS
     Route: 058
     Dates: start: 20060407, end: 20080901
  3. IBUPROFEN [Concomitant]

REACTIONS (2)
  - COAGULOPATHY [None]
  - PULMONARY EMBOLISM [None]
